FAERS Safety Report 9066188 (Version 2)
Quarter: 2013Q1

REPORT INFORMATION
  Report Type: Spontaneous
  Country: US (occurrence: US)
  Receive Date: 20130214
  Receipt Date: 20130320
  Transmission Date: 20140127
  Serious: Yes (Hospitalization, Other)
  Sender: FDA-Public Use
  Company Number: US-ASTELLAS-2012US011575

PATIENT
  Age: 75 None
  Sex: Male

DRUGS (5)
  1. VESICARE [Suspect]
     Indication: URINARY INCONTINENCE
     Dosage: 5 MG, UID/QD
     Route: 048
     Dates: start: 201207
  2. VESICARE [Suspect]
     Dosage: 10 MG, UID/QD
     Route: 048
     Dates: start: 20121118
  3. TROSPIUM [Concomitant]
     Indication: BLADDER SPASM
     Dosage: 20 MG, UID/QD
     Route: 065
     Dates: start: 20120711, end: 20120810
  4. CEFDINIR [Concomitant]
     Indication: PRODUCT USED FOR UNKNOWN INDICATION
     Dosage: 30 MG, BID
     Route: 065
     Dates: start: 20121105, end: 20121115
  5. NAPROXEN [Concomitant]
     Indication: ARTHRITIS
     Dosage: 500 MG, BID
     Route: 065
     Dates: start: 20120915, end: 20121005

REACTIONS (5)
  - Drug ineffective [Unknown]
  - Pericardial effusion [Unknown]
  - Nocturia [Unknown]
  - Knee deformity [Unknown]
  - Atrial fibrillation [Recovered/Resolved]
